FAERS Safety Report 9450733 (Version 1)
Quarter: 2013Q3

REPORT INFORMATION
  Report Type: Spontaneous
  Country: US (occurrence: US)
  Receive Date: 20130809
  Receipt Date: 20130809
  Transmission Date: 20140515
  Serious: No
  Sender: FDA-Public Use
  Company Number: US-AMGEN-USASP2012059970

PATIENT
  Age: 59 Year
  Sex: Male

DRUGS (6)
  1. NEUPOGEN [Suspect]
     Indication: CHEMOTHERAPY
     Dosage: UNK
     Dates: start: 2010
  2. NEUPOGEN [Suspect]
  3. CARMUSTINE [Concomitant]
     Indication: NEOPLASM MALIGNANT
  4. HUMALOG [Concomitant]
     Dosage: UNK
  5. LANTUS [Concomitant]
     Dosage: UNK
  6. METFORMIN [Concomitant]
     Dosage: UNK

REACTIONS (3)
  - Pemphigus [Not Recovered/Not Resolved]
  - White blood cell count decreased [Not Recovered/Not Resolved]
  - Bone pain [Recovered/Resolved]
